FAERS Safety Report 13193835 (Version 1)
Quarter: 2017Q1

REPORT INFORMATION
  Report Type: Spontaneous
  Country: DK (occurrence: DK)
  Receive Date: 20170207
  Receipt Date: 20170207
  Transmission Date: 20170428
  Serious: Yes (Hospitalization, Other)
  Sender: FDA-Public Use
  Company Number: DK-SHIRE-DK201702309

PATIENT
  Age: 17 Year
  Sex: Male

DRUGS (2)
  1. 489 (LISDEXAMFETAMINE DIMESYLATE) [Suspect]
     Active Substance: LISDEXAMFETAMINE DIMESYLATE
     Indication: ATTENTION DEFICIT/HYPERACTIVITY DISORDER
     Dosage: 70 MG, UNKNOWN
     Route: 048
  2. SERTRALINE [Suspect]
     Active Substance: SERTRALINE HYDROCHLORIDE
     Indication: DEPRESSION
     Dosage: 100 MG, UNKNOWN
     Route: 065

REACTIONS (4)
  - Supraventricular tachycardia [Unknown]
  - Anxiety [Unknown]
  - Reversible cerebral vasoconstriction syndrome [Unknown]
  - Cerebral infarction [Recovered/Resolved]
